FAERS Safety Report 5700897-9 (Version None)
Quarter: 2008Q2

REPORT INFORMATION
  Report Type: 
  Country: None (occurrence: None)
  Receive Date: 20080410
  Receipt Date: 20080403
  Transmission Date: 20081010
  Serious: Yes (Death)
  Sender: FDA-Public Use
  Company Number: A0721421A

PATIENT
  Age: 69 Year
  Sex: Male

DRUGS (1)
  1. SERETIDE [Suspect]
     Indication: ASTHMA
     Route: 055
     Dates: start: 20080218

REACTIONS (3)
  - DEATH [None]
  - DEMENTIA [None]
  - THYROID NEOPLASM [None]
